FAERS Safety Report 20952856 (Version 1)
Quarter: 2022Q2

REPORT INFORMATION
  Report Type: Spontaneous
  Country: ES (occurrence: ES)
  Receive Date: 20220613
  Receipt Date: 20220613
  Transmission Date: 20220721
  Serious: Yes (Death)
  Sender: FDA-Public Use
  Company Number: ES-PFIZER INC-PV202200000771

PATIENT
  Age: 45 Year
  Sex: Male

DRUGS (2)
  1. INLYTA [Suspect]
     Active Substance: AXITINIB
     Indication: Sarcomatoid carcinoma
     Dosage: 5 MG, 2X/DAY; TWICE DAILY
     Dates: start: 20200602
  2. PEMBROLIZUMAB [Suspect]
     Active Substance: PEMBROLIZUMAB
     Indication: Sarcomatoid carcinoma
     Dosage: 200 MG, EVERY 3 WEEKS
     Dates: start: 20200602

REACTIONS (3)
  - Death [Fatal]
  - Product use in unapproved indication [Unknown]
  - Neoplasm progression [Unknown]

NARRATIVE: CASE EVENT DATE: 20200602
